FAERS Safety Report 9876897 (Version 2)
Quarter: 2014Q1

REPORT INFORMATION
  Report Type: Report from Study
  Country: IT (occurrence: IT)
  Receive Date: 20140206
  Receipt Date: 20140326
  Transmission Date: 20141002
  Serious: Yes (Other)
  Sender: FDA-Public Use
  Company Number: IT-ROCHE-1344772

PATIENT
  Sex: Male
  Weight: 1.33 kg

DRUGS (7)
  1. ALTEPLASE [Suspect]
     Indication: PERIPHERAL ARTERY THROMBOSIS
     Route: 040
  2. ALTEPLASE [Suspect]
     Indication: PERIPHERAL ISCHAEMIA
     Dosage: CONTINUOUS INFUSION OF 0.3 MG/KG/HR
     Route: 042
  3. UNFRACTIONATED HEPARIN [Suspect]
     Indication: PERIPHERAL ARTERY THROMBOSIS
     Route: 065
  4. UNFRACTIONATED HEPARIN [Suspect]
     Indication: PERIPHERAL ISCHAEMIA
  5. ROPIVACAINE [Suspect]
     Indication: NERVE BLOCK
     Dosage: 0.2%, 1ML/KG
     Route: 065
  6. ROPIVACAINE [Suspect]
     Indication: PERIPHERAL ISCHAEMIA
  7. FRESH FROZEN PLASMA [Concomitant]
     Indication: PERIPHERAL ISCHAEMIA

REACTIONS (1)
  - Toe amputation [Unknown]
